FAERS Safety Report 8810958 (Version 2)
Quarter: 2012Q4

REPORT INFORMATION
  Report Type: Report from Study
  Country: US (occurrence: US)
  Receive Date: 20120927
  Receipt Date: 20121018
  Transmission Date: 20130627
  Serious: Yes (Other)
  Sender: FDA-Public Use
  Company Number: US-JNJFOC-20120909369

PATIENT
  Age: 14 Year
  Sex: Male

DRUGS (7)
  1. REMICADE [Suspect]
     Indication: CROHN^S DISEASE
     Dosage: first dose
     Route: 042
     Dates: start: 20120702, end: 20120702
  2. METRONIDAZOLE [Concomitant]
     Indication: CROHN^S DISEASE
     Dates: start: 20120608
  3. PREDNISONE [Concomitant]
     Indication: CROHN^S DISEASE
     Dates: start: 20120608
  4. IRON [Concomitant]
  5. MULTIVITAMINS [Concomitant]
  6. FISH OIL [Concomitant]
  7. PROBIOTIC [Concomitant]

REACTIONS (1)
  - Convulsion [Recovering/Resolving]
